FAERS Safety Report 6096538-4 (Version None)
Quarter: 2009Q1

REPORT INFORMATION
  Report Type: 
  Country: None (occurrence: None)
  Receive Date: 20090225
  Receipt Date: 20090225
  Transmission Date: 20090719
  Serious: Yes (Hospitalization, Disabling, Other)
  Sender: FDA-Public Use
  Company Number: None

PATIENT
  Sex: Male

DRUGS (1)
  1. NUPRON SHOTS [Suspect]
     Indication: PROSTATE CANCER
     Dosage: ONCE PER MONTH

REACTIONS (4)
  - ANOREXIA [None]
  - BEDRIDDEN [None]
  - SPINAL FRACTURE [None]
  - WEIGHT DECREASED [None]
